FAERS Safety Report 5098022-3 (Version None)
Quarter: 2006Q3

REPORT INFORMATION
  Report Type: 
  Country: None (occurrence: None)
  Receive Date: 20060905
  Receipt Date: 20060822
  Transmission Date: 20061208
  Serious: Yes (Death)
  Sender: FDA-Public Use
  Company Number: CLOF-10310

PATIENT
  Age: 73 Year
  Sex: Male
  Weight: 111.6 kg

DRUGS (14)
  1. CLOFARABINE [Suspect]
     Indication: ACUTE MYELOID LEUKAEMIA
     Dates: start: 20060601, end: 20060701
  2. CLOFARABINE [Suspect]
     Indication: MYELODYSPLASTIC SYNDROME
     Dates: start: 20060601, end: 20060701
  3. CLOFARABINE [Suspect]
     Indication: ACUTE MYELOID LEUKAEMIA
     Dosage: 71 MG DAILY IV
     Route: 042
     Dates: start: 20060726, end: 20060730
  4. CLOFARABINE [Suspect]
     Indication: MYELODYSPLASTIC SYNDROME
     Dosage: 71 MG DAILY IV
     Route: 042
     Dates: start: 20060726, end: 20060730
  5. LEVAQUIN [Concomitant]
  6. VALTREX [Concomitant]
  7. FLUCONAZOLE [Concomitant]
  8. GLYBURIDE [Concomitant]
  9. LASIX [Concomitant]
  10. ALLOPURINOL [Concomitant]
  11. AVANDIA [Concomitant]
  12. COMPAZINE [Concomitant]
  13. MAGNESIUM [Concomitant]
  14. NIACIN [Concomitant]

REACTIONS (8)
  - ACUTE RESPIRATORY DISTRESS SYNDROME [None]
  - ANAEMIA [None]
  - BREATH SOUNDS ABNORMAL [None]
  - CONFUSIONAL STATE [None]
  - EYE HAEMORRHAGE [None]
  - INFECTION [None]
  - RALES [None]
  - RENAL FAILURE ACUTE [None]
